FAERS Safety Report 14685558 (Version 3)
Quarter: 2018Q3

REPORT INFORMATION
  Report Type: Report from Study
  Country: AR (occurrence: AR)
  Receive Date: 20180327
  Receipt Date: 20180906
  Transmission Date: 20181010
  Serious: Yes (Death, Life-Threatening, Hospitalization)
  Sender: FDA-Public Use
  Company Number: PHHY2018AR052588

PATIENT
  Age: 71 Year
  Sex: Female

DRUGS (7)
  1. ENTRESTO [Suspect]
     Active Substance: SACUBITRIL\VALSARTAN
     Dosage: 50 MG, QD
     Route: 065
  2. ALPLAX [Concomitant]
     Active Substance: ALPRAZOLAM
     Indication: PRODUCT USED FOR UNKNOWN INDICATION
     Dosage: 1 MG, BID (ONE IN THE MORNING AND ONE AT NIGHT)
     Route: 065
  3. ULCOZOL [Concomitant]
     Indication: PROPHYLAXIS
     Route: 065
  4. ENTRESTO [Suspect]
     Active Substance: SACUBITRIL\VALSARTAN
     Indication: CARDIAC FAILURE
     Dosage: 50 MG, BID
     Route: 065
  5. ENTRESTO [Suspect]
     Active Substance: SACUBITRIL\VALSARTAN
     Dosage: 0.5 DF, Q12H
     Route: 065
  6. FUROSEMIDE. [Concomitant]
     Active Substance: FUROSEMIDE
     Indication: PRODUCT USED FOR UNKNOWN INDICATION
     Route: 065
  7. CORBIS [Concomitant]
     Indication: PRODUCT USED FOR UNKNOWN INDICATION
     Route: 065

REACTIONS (27)
  - Myocardial infarction [Recovering/Resolving]
  - Crying [Unknown]
  - Sciatica [Recovering/Resolving]
  - Malaise [Recovering/Resolving]
  - Death [Fatal]
  - Haematuria [Recovered/Resolved]
  - Leriche syndrome [Unknown]
  - Pain in extremity [Unknown]
  - Screaming [Unknown]
  - Peripheral ischaemia [Unknown]
  - Syncope [Recovered/Resolved]
  - Prescribed underdose [Unknown]
  - Inappropriate schedule of drug administration [Unknown]
  - Drug ineffective [Unknown]
  - Apparent death [Recovered/Resolved]
  - Dehydration [Recovered/Resolved]
  - Gait inability [Unknown]
  - Nervousness [Not Recovered/Not Resolved]
  - Peripheral coldness [Unknown]
  - Renal disorder [Recovered/Resolved]
  - Splenic abscess [Recovering/Resolving]
  - Back pain [Unknown]
  - Skin discolouration [Recovered/Resolved]
  - Hypoaesthesia [Recovering/Resolving]
  - Stress [Not Recovered/Not Resolved]
  - Cardiac failure [Recovering/Resolving]
  - Wrong technique in product usage process [Unknown]

NARRATIVE: CASE EVENT DATE: 201710
